FAERS Safety Report 6150499-8 (Version None)
Quarter: 2009Q2

REPORT INFORMATION
  Report Type: 
  Country: None (occurrence: None)
  Receive Date: 20090409
  Receipt Date: 20090403
  Transmission Date: 20091009
  Serious: Yes (Other)
  Sender: FDA-Public Use
  Company Number: US-PFIZER INC-2009194531

PATIENT
  Sex: Male
  Weight: 98 kg

DRUGS (6)
  1. LIPITOR [Suspect]
     Dates: start: 20060101
  2. PLAVIX [Concomitant]
  3. AVAPRO [Concomitant]
  4. ACETYLSALICYLIC ACID [Concomitant]
  5. MULTIVIT [Concomitant]
  6. FISH OIL [Concomitant]

REACTIONS (4)
  - CHEST PAIN [None]
  - GAIT DISTURBANCE [None]
  - MYALGIA [None]
  - WEIGHT INCREASED [None]
